FAERS Safety Report 6282606-0 (Version None)
Quarter: 2009Q3

REPORT INFORMATION
  Report Type: 
  Country: None (occurrence: None)
  Receive Date: 20090724
  Receipt Date: 20090714
  Transmission Date: 20100115
  Serious: Yes (Other)
  Sender: FDA-Public Use
  Company Number: PHEH2007US15320

PATIENT
  Sex: Female

DRUGS (4)
  1. FEMARA [Suspect]
     Indication: HORMONE REPLACEMENT THERAPY
     Dosage: 2.5 MG, QD
     Route: 048
     Dates: start: 20070801
  2. SYNTHROID [Concomitant]
     Dosage: UNK, UNK
  3. VALIUM [Concomitant]
     Dosage: UNK, UNK
  4. LANOXIN [Concomitant]
     Dosage: UNK, UNK

REACTIONS (9)
  - ARTHRALGIA [None]
  - BLOOD CHOLESTEROL INCREASED [None]
  - DIZZINESS [None]
  - FATIGUE [None]
  - GENERAL PHYSICAL HEALTH DETERIORATION [None]
  - GLAUCOMA [None]
  - HAIR COLOUR CHANGES [None]
  - INTRAOCULAR PRESSURE INCREASED [None]
  - WEIGHT INCREASED [None]
